FAERS Safety Report 23185262 (Version 5)
Quarter: 2024Q3

REPORT INFORMATION
  Report Type: Report from Study
  Country: US (occurrence: US)
  Receive Date: 20231115
  Receipt Date: 20240829
  Transmission Date: 20241017
  Serious: Yes (Other)
  Sender: KYOWA
  Company Number: US-KYOWAKIRIN-2023KK017973

PATIENT

DRUGS (7)
  1. BUROSUMAB [Suspect]
     Active Substance: BUROSUMAB
     Indication: Osteomalacia
     Dosage: 60 MG, 1X/4 WEEKS
     Route: 058
     Dates: start: 202308
  2. BUROSUMAB [Suspect]
     Active Substance: BUROSUMAB
     Indication: Mineral metabolism disorder
     Dosage: 90 MG, 1X/4 WEEKS
     Route: 058
  3. BUROSUMAB [Suspect]
     Active Substance: BUROSUMAB
     Indication: Osteomalacia
     Dosage: 80 MG, 1X/4 WEEKS
     Route: 058
     Dates: start: 202308
  4. BUROSUMAB [Suspect]
     Active Substance: BUROSUMAB
     Dosage: 80 MG, 1X/4 WEEKS
     Route: 058
     Dates: start: 20231219
  5. BUROSUMAB [Suspect]
     Active Substance: BUROSUMAB
     Indication: Product used for unknown indication
     Dosage: UNK
     Route: 065
  6. BUROSUMAB [Suspect]
     Active Substance: BUROSUMAB
     Indication: Osteomalacia
     Dosage: 10 MG, 1X/4 WEEKS
     Route: 058
  7. BUROSUMAB [Suspect]
     Active Substance: BUROSUMAB
     Indication: Mineral metabolism disorder

REACTIONS (9)
  - Hallucination [Unknown]
  - Tooth disorder [Unknown]
  - Pruritus [Unknown]
  - Pruritus [Unknown]
  - Rash macular [Unknown]
  - Urticaria [Unknown]
  - Rash [Unknown]
  - Injection site pruritus [Unknown]
  - Product use in unapproved indication [Not Recovered/Not Resolved]

NARRATIVE: CASE EVENT DATE: 20230801
